FAERS Safety Report 19674998 (Version 2)
Quarter: 2021Q3

REPORT INFORMATION
  Report Type: Spontaneous
  Country: US (occurrence: US)
  Receive Date: 20210809
  Receipt Date: 20210811
  Transmission Date: 20211014
  Serious: Yes (Hospitalization)
  Sender: FDA-Public Use
  Company Number: US-SA-2021SA261077

PATIENT
  Age: 36 Year
  Sex: Male

DRUGS (4)
  1. PROTOPIC [Concomitant]
     Active Substance: TACROLIMUS
  2. TRIAMCINOLON [TRIAMCINOLONE] [Concomitant]
     Active Substance: TRIAMCINOLONE
  3. DOXYCYCLINE HCL [Concomitant]
     Active Substance: DOXYCYCLINE HYDROCHLORIDE
  4. DUPIXENT [Suspect]
     Active Substance: DUPILUMAB
     Indication: DERMATITIS
     Dosage: 300 MG, QOW
     Route: 058
     Dates: start: 20210602, end: 202107

REACTIONS (3)
  - Unevaluable event [Unknown]
  - Product use in unapproved indication [Unknown]
  - Eye disorder [Unknown]

NARRATIVE: CASE EVENT DATE: 20210602
